FAERS Safety Report 7241620-9 (Version None)
Quarter: 2011Q1

REPORT INFORMATION
  Report Type: 
  Country: None (occurrence: None)
  Receive Date: 20110114
  Receipt Date: 20101222
  Transmission Date: 20110831
  Serious: Yes (Other)
  Sender: FDA-Public Use
  Company Number: ALA_01473_2011

PATIENT
  Sex: Female

DRUGS (1)
  1. REGLAN [Suspect]
     Indication: PRODUCT USED FOR UNKNOWN INDICATION
     Dosage: (ORAL), (ORAL)
     Route: 048
     Dates: start: 20070701, end: 20090301

REACTIONS (4)
  - DYSKINESIA [None]
  - ECONOMIC PROBLEM [None]
  - RESTLESS LEGS SYNDROME [None]
  - EMOTIONAL DISORDER [None]
